FAERS Safety Report 23262345 (Version 1)
Quarter: 2023Q4

REPORT INFORMATION
  Report Type: Spontaneous
  Country: US (occurrence: None)
  Receive Date: 20231204
  Receipt Date: 20231204
  Transmission Date: 20240110
  Serious: No
  Sender: FDA-Public Use
  Company Number: None

PATIENT
  Age: 62 Year
  Sex: Female
  Weight: 60.33 kg

DRUGS (5)
  1. ENBREL [Suspect]
     Active Substance: ETANERCEPT
     Indication: Behcet^s syndrome
     Dosage: INJECT 50MG SUBCUTANEOUSLY ONCE WEEKLY AS DIRECTED
     Route: 058
     Dates: start: 202301
  2. ENBREL [Suspect]
     Active Substance: ETANERCEPT
     Indication: Psoriatic arthropathy
  3. ENBREL [Suspect]
     Active Substance: ETANERCEPT
     Indication: Rheumatoid arthritis
  4. ENBREL [Suspect]
     Active Substance: ETANERCEPT
     Indication: Rheumatoid arthritis
  5. ENBREL [Suspect]
     Active Substance: ETANERCEPT
     Indication: Fibromyalgia

REACTIONS (1)
  - Respiratory tract infection [None]
